FAERS Safety Report 5769477-3 (Version None)
Quarter: 2008Q2

REPORT INFORMATION
  Report Type: 
  Country: None (occurrence: None)
  Receive Date: 20080612
  Receipt Date: 20080326
  Transmission Date: 20081010
  Serious: No
  Sender: FDA-Public Use
  Company Number: US-ABBOTT-08P-163-0444660-00

PATIENT
  Sex: Female
  Weight: 40.86 kg

DRUGS (3)
  1. HUMIRA [Suspect]
     Indication: CROHN'S DISEASE
     Dosage: INITIAL CROHN'S LOADING DOSE OF 160 MG, THEN 80 MG, THEN 40 MG EVERY OTHER WEEK DOSE
     Route: 058
     Dates: start: 20080322
  2. TERIPARATIDE [Concomitant]
     Indication: OSTEOPOROSIS
     Route: 058
     Dates: start: 20060101
  3. CORTISONE [Concomitant]
     Indication: CROHN'S DISEASE
     Route: 048
     Dates: start: 20080101

REACTIONS (4)
  - ACCIDENTAL EXPOSURE [None]
  - INJECTION SITE BRUISING [None]
  - INJECTION SITE IRRITATION [None]
  - INJECTION SITE PAIN [None]
